FAERS Safety Report 5300198-7 (Version None)
Quarter: 2007Q2

REPORT INFORMATION
  Report Type: 
  Country: None (occurrence: None)
  Receive Date: 20070411
  Receipt Date: 20070405
  Transmission Date: 20071010
  Serious: Yes (Life-Threatening)
  Sender: FDA-Public Use
  Company Number: 2007S1000070

PATIENT
  Age: 9 Day
  Sex: Female

DRUGS (7)
  1. NITRIC OXIDE [Suspect]
     Indication: LUNG DISORDER
     Dosage: 5 PPM; INH_GAS; INH;
     Route: 055
     Dates: start: 20070327
  2. NITRIC OXIDE [Suspect]
     Indication: PROPHYLAXIS
     Dosage: 5 PPM; INH_GAS; INH;
     Route: 055
     Dates: start: 20070327
  3. IBUPROFEN [Concomitant]
  4. DOPAMINE HCL [Concomitant]
  5. HEPATITIS B IMMUNE GLOBULIN (IMMUNOGLOBULIN ANTIHEPATITIS B) [Concomitant]
  6. VANCOMYCIN [Concomitant]
  7. CEFTAZIDIME [Concomitant]

REACTIONS (2)
  - INTRAVENTRICULAR HAEMORRHAGE NEONATAL [None]
  - PATENT DUCTUS ARTERIOSUS [None]
